FAERS Safety Report 15205906 (Version 4)
Quarter: 2018Q3

REPORT INFORMATION
  Report Type: Spontaneous
  Country: ES (occurrence: ES)
  Receive Date: 20180727
  Receipt Date: 20180907
  Transmission Date: 20181010
  Serious: Yes (Other)
  Sender: FDA-Public Use
  Company Number: ES-009507513-1807ESP011691

PATIENT
  Age: 84 Year
  Sex: Female

DRUGS (1)
  1. NASONEX [Suspect]
     Active Substance: MOMETASONE FUROATE
     Indication: NASOPHARYNGITIS
     Dosage: IN THE EARS, 2 ^DROPS^ AT MORNING AND 2 ^DROPS^ IN THE AFTERNOON
     Dates: start: 20180720, end: 2018

REACTIONS (4)
  - Product use in unapproved indication [Unknown]
  - Decreased activity [Not Recovered/Not Resolved]
  - Hypoacusis [Not Recovered/Not Resolved]
  - Incorrect route of drug administration [Unknown]

NARRATIVE: CASE EVENT DATE: 201807
